FAERS Safety Report 4315823-7 (Version None)
Quarter: 2004Q1

REPORT INFORMATION
  Report Type: 
  Country: None (occurrence: None)
  Receive Date: 20040310
  Receipt Date: 20040225
  Transmission Date: 20041129
  Serious: Yes (Hospitalization)
  Sender: FDA-Public Use
  Company Number: TEST00204000509

PATIENT
  Age: 0 Day
  Sex: Male
  Weight: 3.7649 kg

DRUGS (2)
  1. ANDROGEL [Suspect]
     Indication: BLOOD TESTOSTERONE DECREASED
     Dosage: 10 G QD TD
     Route: 062
     Dates: start: 20030301
  2. ANDROGEL [Suspect]
     Indication: DRUG EXPOSURE DURING PREGNANCY
     Dosage: 10 G QD TD
     Route: 062
     Dates: start: 20030301

REACTIONS (4)
  - LUNG INFECTION [None]
  - NEONATAL DISORDER [None]
  - PLACENTA PRAEVIA [None]
  - TRANSMISSION OF DRUG VIA SEMEN [None]
